FAERS Safety Report 10969078 (Version 1)
Quarter: 2015Q1

REPORT INFORMATION
  Report Type: Spontaneous
  Country: US (occurrence: US)
  Receive Date: 20150331
  Receipt Date: 20150331
  Transmission Date: 20150721
  Serious: Yes (Hospitalization)
  Sender: FDA-Public Use
  Company Number: US-PFIZER INC-2015043207

PATIENT
  Age: 43 Year
  Sex: Male

DRUGS (3)
  1. LYRICA [Suspect]
     Active Substance: PREGABALIN
     Indication: NEUROPATHY PERIPHERAL
     Dosage: 150 MG, TWICE A DAY
     Dates: start: 2008
  2. VFEND [Concomitant]
     Active Substance: VORICONAZOLE
     Dosage: UNK
  3. EFFEXOR XR [Suspect]
     Active Substance: VENLAFAXINE HYDROCHLORIDE
     Indication: DEPRESSION
     Dosage: 300 MG ONCE
     Dates: start: 2008

REACTIONS (3)
  - Fungal infection [Unknown]
  - Diabetes mellitus [Unknown]
  - Bacterial infection [Unknown]
